FAERS Safety Report 9160416 (Version 1)
Quarter: 2013Q1

REPORT INFORMATION
  Report Type: Spontaneous
  Country: CN (occurrence: None)
  Receive Date: 20130220
  Receipt Date: 20130220
  Transmission Date: 20140127
  Serious: Yes (Other)
  Sender: FDA-Public Use
  Company Number: SYM-2013-00492

PATIENT
  Sex: Female

DRUGS (5)
  1. FLUOROURACIL [Suspect]
     Indication: COLORECTAL CANCER
     Route: 042
  2. HERBAL PREPARATION (HERBAL PREPARATION) [Suspect]
     Indication: COLORECTAL CANCER
  3. OXALIPLATIN [Suspect]
     Indication: COLORECTAL CANCER
     Route: 042
  4. CALCIUM FOLINATE [Suspect]
     Indication: COLORECTAL CANCER
     Route: 042
  5. GRANISETRON [Concomitant]

REACTIONS (1)
  - Neurotoxicity [None]
